FAERS Safety Report 7467446-9 (Version None)
Quarter: 2011Q2

REPORT INFORMATION
  Report Type: 
  Country: None (occurrence: None)
  Receive Date: 20110509
  Receipt Date: 20101221
  Transmission Date: 20111010
  Serious: No
  Sender: FDA-Public Use
  Company Number: US-ALEXION-A201001651

PATIENT
  Sex: Female

DRUGS (10)
  1. SOLIRIS [Suspect]
     Dosage: 900 MG, Q2W
     Route: 042
     Dates: start: 20101213
  2. MAXZIDE [Concomitant]
     Indication: HYPERTENSION
     Dosage: UNK
     Route: 048
  3. METFORMIN [Concomitant]
     Indication: DIABETES MELLITUS
     Dosage: 500 MG, BID
     Route: 048
  4. SOLIRIS [Suspect]
     Indication: PAROXYSMAL NOCTURNAL HAEMOGLOBINURIA
     Dosage: 600 MG, QW X4
     Route: 042
     Dates: start: 20101108, end: 20101129
  5. ATENOLOL [Concomitant]
     Indication: HYPERTENSION
     Dosage: 25 MG, QD
     Route: 048
  6. FOLATE [Concomitant]
     Indication: PAROXYSMAL NOCTURNAL HAEMOGLOBINURIA
     Dosage: 1 MG, BID
     Route: 048
  7. BACTRIM [Concomitant]
     Indication: PROPHYLAXIS
     Dosage: 3X QW
     Route: 048
  8. ZOCOR [Concomitant]
     Indication: HYPERCHOLESTEROLAEMIA
     Dosage: 40 MG, Q2W
     Route: 048
  9. LOVENOX [Concomitant]
     Indication: THROMBOSIS PROPHYLAXIS
     Dosage: 80 MG, BID
     Route: 058
  10. LANTUS [Concomitant]
     Indication: DIABETES MELLITUS
     Dosage: 50 MG, Q2W
     Route: 058

REACTIONS (2)
  - RASH MACULAR [None]
  - RASH PRURITIC [None]
